FAERS Safety Report 13537691 (Version 1)
Quarter: 2017Q2

REPORT INFORMATION
  Report Type: Spontaneous
  Country: US (occurrence: US)
  Receive Date: 20170511
  Receipt Date: 20170511
  Transmission Date: 20170830
  Serious: Yes (Death)
  Sender: FDA-Public Use
  Company Number: US-ACTELION-A-US2017-153481

PATIENT
  Age: 74 Year
  Sex: Male

DRUGS (2)
  1. TRACLEER [Suspect]
     Active Substance: BOSENTAN
     Indication: PULMONARY ARTERIAL HYPERTENSION
     Dosage: 125 MG, UNK
     Route: 048
  2. ADCIRCA [Concomitant]
     Active Substance: TADALAFIL
     Dosage: 20 MG, BID
     Dates: start: 20160621, end: 20170428

REACTIONS (4)
  - Scleroderma [Fatal]
  - Pulmonary arterial hypertension [Fatal]
  - Idiopathic pulmonary fibrosis [Fatal]
  - Disease complication [Fatal]
